FAERS Safety Report 8622841-7 (Version None)
Quarter: 2012Q3

REPORT INFORMATION
  Report Type: 
  Country: None (occurrence: None)
  Receive Date: 20120827
  Receipt Date: 20120821
  Transmission Date: 20120928
  Serious: Yes (Other)
  Sender: FDA-Public Use
  Company Number: PHHY2012AU073126

PATIENT
  Sex: Female

DRUGS (4)
  1. ZOLEDRONOC ACID [Suspect]
     Route: 042
     Dates: start: 20120621
  2. MELOXICAM [Concomitant]
     Dosage: 15 MG/DAY
  3. LIPITOR [Concomitant]
     Dosage: 20 MG/DAY
  4. TEGRETOL [Concomitant]
     Dosage: 2 G/DAY

REACTIONS (2)
  - MUSCLE SPASMS [None]
  - ABASIA [None]
